FAERS Safety Report 4791325-9 (Version None)
Quarter: 2005Q4

REPORT INFORMATION
  Report Type: 
  Country: None (occurrence: None)
  Receive Date: 20051007
  Receipt Date: 20050928
  Transmission Date: 20060501
  Serious: Yes (Hospitalization)
  Sender: FDA-Public Use
  Company Number: DE-JNJFOC-20050906611

PATIENT
  Age: 46 Year
  Sex: Female

DRUGS (18)
  1. REMICADE [Suspect]
     Route: 042
  2. REMICADE [Suspect]
     Route: 042
  3. REMICADE [Suspect]
     Route: 042
  4. OSSOFORTIN [Concomitant]
     Route: 065
  5. OSSOFORTIN [Concomitant]
     Route: 065
  6. OSSOFORTIN [Concomitant]
     Indication: OSTEOPOROSIS PROPHYLAXIS
     Route: 065
  7. KATADOLON [Concomitant]
     Route: 065
  8. INDOMETHACIN [Concomitant]
     Route: 065
  9. OMEP [Concomitant]
     Route: 065
  10. CARBIMAZOL [Concomitant]
     Indication: HYPERTHYROIDISM
     Route: 065
  11. BISOPROLOL [Concomitant]
     Route: 065
  12. ARCOXIA [Concomitant]
     Route: 065
  13. DECORTIN [Concomitant]
     Route: 065
  14. PREDNISOLONE [Concomitant]
     Route: 065
  15. BERODUAL [Concomitant]
     Route: 065
  16. BERODUAL [Concomitant]
     Route: 065
  17. THEOPHYLLINE [Concomitant]
     Route: 065
  18. BETABLOCKER [Concomitant]
     Indication: HYPERTENSION
     Route: 065

REACTIONS (2)
  - BRONCHITIS CHRONIC [None]
  - PNEUMONIA PRIMARY ATYPICAL [None]
